FAERS Safety Report 6167637-3 (Version None)
Quarter: 2009Q2

REPORT INFORMATION
  Report Type: 
  Country: None (occurrence: None)
  Receive Date: 20090424
  Receipt Date: 20090415
  Transmission Date: 20091009
  Serious: Yes (Other)
  Sender: FDA-Public Use
  Company Number: PHEH2007US13776

PATIENT
  Sex: Female

DRUGS (2)
  1. GENTEAL MODERATE LUBRICANT EYE DROPS (NVO) [Suspect]
  2. GENTEAL GEL (NVO) [Suspect]
     Dosage: TWICE IN BOTH EYES

REACTIONS (3)
  - EYE PAIN [None]
  - GLAUCOMA [None]
  - GLAUCOMA SURGERY [None]
